FAERS Safety Report 6822754-7 (Version None)
Quarter: 2010Q3

REPORT INFORMATION
  Report Type: 
  Country: None (occurrence: None)
  Receive Date: 20100708
  Receipt Date: 20100624
  Transmission Date: 20110219
  Serious: Yes (Death, Life-Threatening, Hospitalization, Other)
  Sender: FDA-Public Use
  Company Number: JP-ROCHE-688756

PATIENT
  Sex: Female
  Weight: 52 kg

DRUGS (15)
  1. AVASTIN [Suspect]
     Indication: COLON CANCER METASTATIC
     Dosage: FORM: INJECTION
     Route: 041
     Dates: start: 20090115, end: 20100201
  2. MOBIC [Suspect]
     Indication: PRODUCT USED FOR UNKNOWN INDICATION
     Route: 048
     Dates: start: 20090427, end: 20100218
  3. IRINOTECAN HYDROCHLORIDE [Concomitant]
     Indication: LARGE INTESTINE CARCINOMA
     Dosage: DRUG: UNKNOWN DRUG (IRINOTECAN HYDROCHLORIDE); FORM: INJECTION
     Route: 041
  4. TS-1 [Concomitant]
     Route: 048
     Dates: start: 20100201, end: 20100218
  5. ELPLAT [Concomitant]
     Dosage: FORM: INJECTION, DOSAGE IS UNCERTAIN
     Route: 041
     Dates: start: 20090115, end: 20090420
  6. FLUOROURACIL [Concomitant]
     Dosage: DOSAGE IS UNCERTAIN
     Route: 040
     Dates: start: 20090115, end: 20090420
  7. FLUOROURACIL [Concomitant]
     Dosage: ROUTE: INTRAVENOUS DRIP, DOSAGE IS UNCERTAIN
     Route: 040
     Dates: start: 20090115, end: 20090401
  8. FLUOROURACIL [Concomitant]
     Dosage: ROUTE: INTRAVENOUS DRIP, DOSAGE IS UNCERTAIN
     Route: 040
     Dates: start: 20090511, end: 20100118
  9. FLUOROURACIL [Concomitant]
     Dosage: ROUTE: INTRAVENOUS DRIP, DOSAGE IS UNCERTAIN
     Route: 040
     Dates: start: 20090511, end: 20100118
  10. CALCIUM LEVOFOLINATE [Concomitant]
     Dosage: DOSAGE IS UNCERTAIN
     Route: 041
     Dates: start: 20090115, end: 20090420
  11. CALCIUM LEVOFOLINATE [Concomitant]
     Dosage: DOSAGE IS UNCERTAIN.
     Route: 041
     Dates: start: 20090511, end: 20100118
  12. CALCIUM LEVOFOLINATE [Concomitant]
     Dosage: DOSAGE IS UNCERTAIN
     Route: 041
     Dates: start: 20090511, end: 20100118
  13. TOPOTECAN [Concomitant]
     Dosage: DOSAGE IS UNCERTAIN
     Route: 041
     Dates: start: 20090511, end: 20100118
  14. TOPOTECAN [Concomitant]
     Route: 041
     Dates: start: 20100201, end: 20100201
  15. PROTECADIN [Concomitant]
     Route: 048
     Dates: start: 20090713, end: 20100218

REACTIONS (8)
  - DECREASED APPETITE [None]
  - DISSEMINATED INTRAVASCULAR COAGULATION [None]
  - ENDOTOXAEMIA [None]
  - FLANK PAIN [None]
  - GASTROINTESTINAL PERFORATION [None]
  - MULTI-ORGAN FAILURE [None]
  - PYREXIA [None]
  - SEPTIC SHOCK [None]
